FAERS Safety Report 20024491 (Version 2)
Quarter: 2021Q4

REPORT INFORMATION
  Report Type: Spontaneous
  Country: GB (occurrence: GB)
  Receive Date: 20211102
  Receipt Date: 20211104
  Transmission Date: 20220303
  Serious: Yes (Life-Threatening, Other)
  Sender: FDA-Public Use
  Company Number: None

PATIENT
  Age: 89 Year
  Sex: Male
  Weight: 92.5 kg

DRUGS (7)
  1. ALENDRONATE SODIUM [Suspect]
     Active Substance: ALENDRONATE SODIUM
     Dosage: 70 MILLIGRAM, QW
     Dates: start: 20210825, end: 20211023
  2. BISOPROLOL [Concomitant]
     Active Substance: BISOPROLOL
     Dosage: 10 MILLIGRAM
     Dates: start: 20211007
  3. EVACAL D3 [Concomitant]
     Dosage: 1500 MG/400 UNIT
     Dates: start: 20210825, end: 20211020
  4. INDAPAMIDE [Concomitant]
     Active Substance: INDAPAMIDE
     Dosage: 2.5 MILLIGRAM
     Dates: start: 20210803
  5. LOSARTAN POTASSIUM [Concomitant]
     Active Substance: LOSARTAN POTASSIUM
     Dosage: 100 MILLIGRAM
     Dates: start: 20211007
  6. PREDNISOLONE [Concomitant]
     Active Substance: PREDNISOLONE
     Dosage: 5 MILLIGRAM
     Dates: start: 20210825
  7. RIVAROXABAN [Concomitant]
     Active Substance: RIVAROXABAN
     Dosage: 15 MILLIGRAM
     Dates: start: 20210913

REACTIONS (3)
  - Dyspnoea [Recovered/Resolved]
  - Mouth swelling [Recovered/Resolved]
  - Dysphagia [Recovered/Resolved]

NARRATIVE: CASE EVENT DATE: 20210825
